FAERS Safety Report 13455283 (Version 1)
Quarter: 2017Q2

REPORT INFORMATION
  Report Type: Spontaneous
  Country: US (occurrence: US)
  Receive Date: 20170419
  Receipt Date: 20170419
  Transmission Date: 20170830
  Serious: No
  Sender: FDA-Public Use
  Company Number: US-PFIZER INC-2017162316

PATIENT
  Age: 45 Year
  Sex: Male

DRUGS (2)
  1. GLIPIZIDE. [Suspect]
     Active Substance: GLIPIZIDE
     Indication: DIABETES MELLITUS
     Dosage: 5 MG, 1X/DAY
  2. GLIPIZIDE. [Suspect]
     Active Substance: GLIPIZIDE
     Dosage: 15 MG, DAILY (THREE 5MG TABLETS)

REACTIONS (3)
  - Blood glucose increased [Unknown]
  - Condition aggravated [Unknown]
  - Diplopia [Unknown]

NARRATIVE: CASE EVENT DATE: 20161012
